FAERS Safety Report 8450713-X (Version None)
Quarter: 2012Q2

REPORT INFORMATION
  Report Type: 
  Country: None (occurrence: None)
  Receive Date: 20120620
  Receipt Date: 20120614
  Transmission Date: 20120825
  Serious: Yes (Death, Hospitalization)
  Sender: FDA-Public Use
  Company Number: CL-PFIZER INC-2012133837

PATIENT
  Age: 10 Month
  Sex: Male
  Weight: 13 kg

DRUGS (15)
  1. MIDAZOLAM [Concomitant]
     Indication: ANALGESIC THERAPY
  2. MORPHINE [Concomitant]
     Indication: ANALGESIC THERAPY
     Dosage: UNK
     Route: 042
     Dates: start: 20120528, end: 20120531
  3. MORPHINE [Concomitant]
     Indication: SEDATION
     Dosage: UNK
     Route: 042
     Dates: start: 20120521, end: 20120522
  4. VFEND [Suspect]
     Indication: ASPERGILLOSIS
     Dosage: 100 MG, 2X/DAY
     Route: 042
     Dates: start: 20120522
  5. COTRIM [Concomitant]
     Indication: PNEUMOCYSTIS JIROVECI INFECTION
     Dosage: 35 MG, 3X/DAY
     Route: 042
     Dates: start: 20120518, end: 20120531
  6. FENTANYL [Concomitant]
     Indication: ANALGESIC THERAPY
  7. DEXMEDETOMIDINE [Concomitant]
     Indication: SEDATION
     Dosage: 0.2 MG, 0.2MG/50 ML, 1.1 - 1.4 ML/HR
     Route: 041
     Dates: start: 20120529, end: 20120531
  8. FENTANYL [Concomitant]
     Indication: SEDATION
     Dosage: UNK
     Route: 042
     Dates: start: 20120523, end: 20120527
  9. VANCOMYCIN [Concomitant]
     Indication: INFECTION
     Dosage: UNK
     Route: 042
     Dates: start: 20120515, end: 20120531
  10. COLOMYCIN FOR INJECTION [Concomitant]
     Indication: INFECTION
     Dosage: UNK
     Route: 042
     Dates: start: 20120525, end: 20120531
  11. AMPHOTERICIN B [Concomitant]
  12. RISPERIDONE [Interacting]
     Indication: MOOD ALTERED
     Dosage: UNK
     Route: 048
     Dates: start: 20120401, end: 20120525
  13. MIDAZOLAM [Concomitant]
     Indication: SEDATION
     Dosage: 4 UG/KG, PER MINUTE
     Route: 041
     Dates: start: 20120521
  14. MEROPENEM [Concomitant]
     Indication: INFECTION
  15. CIPROFLOXACIN HYDROCHLORIDE [Interacting]
     Indication: URINARY TRACT INFECTION
     Dosage: 120 MG, 2X/DAY
     Route: 042
     Dates: start: 20120514, end: 20120529

REACTIONS (6)
  - VENTRICULAR TACHYCARDIA [None]
  - ELECTROCARDIOGRAM ABNORMAL [None]
  - ELECTROCARDIOGRAM QT PROLONGED [None]
  - ARRHYTHMIA [None]
  - EXTRASYSTOLES [None]
  - DRUG INTERACTION [None]
